FAERS Safety Report 19008271 (Version 4)
Quarter: 2021Q2

REPORT INFORMATION
  Report Type: Spontaneous
  Country: US (occurrence: US)
  Receive Date: 20210316
  Receipt Date: 20210608
  Transmission Date: 20210717
  Serious: Yes (Hospitalization, Other)
  Sender: FDA-Public Use
  Company Number: US-PIRAMAL PHARMA LIMITED-2021-PEL-000154

PATIENT

DRUGS (3)
  1. GABLOFEN [Suspect]
     Active Substance: BACLOFEN
     Indication: DIPLEGIA
     Dosage: 230 MICROGRAM/DAY
     Route: 037
  2. GABLOFEN [Suspect]
     Active Substance: BACLOFEN
     Dosage: 96 MICROGRAM/DAY
     Route: 037
  3. GABLOFEN [Suspect]
     Active Substance: BACLOFEN
     Indication: CEREBRAL PALSY
     Dosage: 180 MICROGRAM/DAY
     Route: 037

REACTIONS (9)
  - Incision site discharge [Recovered/Resolved]
  - Decubitus ulcer [Recovered/Resolved]
  - Headache [Recovered/Resolved]
  - Implant site mass [Recovered/Resolved]
  - Pruritus [Recovered/Resolved]
  - Postoperative wound infection [Recovered/Resolved]
  - Pseudomonas infection [Recovered/Resolved]
  - Incision site discharge [Recovered/Resolved]
  - Incision site pain [Recovered/Resolved]

NARRATIVE: CASE EVENT DATE: 20210129
